FAERS Safety Report 11276056 (Version 2)
Quarter: 2015Q3

REPORT INFORMATION
  Report Type: Spontaneous
  Country: JP (occurrence: JP)
  Receive Date: 20150716
  Receipt Date: 20150717
  Transmission Date: 20151125
  Serious: Yes (Hospitalization, Other)
  Sender: FDA-Public Use
  Company Number: JP-VIIV HEALTHCARE LIMITED-JP2015JPN074179

PATIENT
  Sex: Male

DRUGS (6)
  1. REYATAZ [Concomitant]
     Active Substance: ATAZANAVIR SULFATE
     Indication: HIV INFECTION
  2. EPIVIR [Suspect]
     Active Substance: LAMIVUDINE
     Dosage: UNK MG, UNK
     Route: 048
  3. ZIAGEN [Suspect]
     Active Substance: ABACAVIR SULFATE
  4. VIREAD [Concomitant]
     Active Substance: TENOFOVIR DISOPROXIL FUMARATE
     Indication: HIV INFECTION
  5. NORVIR [Concomitant]
     Active Substance: RITONAVIR
     Indication: HIV INFECTION
  6. EPIVIR [Suspect]
     Active Substance: LAMIVUDINE
     Dosage: 50 MG, UNK
     Route: 048

REACTIONS (10)
  - Pleural effusion [Recovered/Resolved]
  - Cerebral atrophy [Not Recovered/Not Resolved]
  - Benign prostatic hyperplasia [Unknown]
  - AIDS dementia complex [Not Recovered/Not Resolved]
  - Tuberculosis [Recovered/Resolved]
  - Treatment noncompliance [Unknown]
  - Pyrexia [Recovered/Resolved]
  - Psychotic disorder [Unknown]
  - Renal atrophy [Unknown]
  - Single functional kidney [Unknown]
